FAERS Safety Report 13689463 (Version 2)
Quarter: 2017Q2

REPORT INFORMATION
  Report Type: Spontaneous
  Country: US (occurrence: US)
  Receive Date: 20170626
  Receipt Date: 20170628
  Transmission Date: 20170830
  Serious: Yes (Death)
  Sender: FDA-Public Use
  Company Number: US-LPDUSPRD-20170878

PATIENT
  Age: 43 Year
  Sex: Male

DRUGS (5)
  1. METHOTREXATE. [Suspect]
     Active Substance: METHOTREXATE
     Dosage: DOSE NOT PROVIDED
     Route: 065
  2. PREDNISONE. [Suspect]
     Active Substance: PREDNISONE
     Dosage: DOSE NOT PROVIDED
     Route: 065
  3. CYCLOSPORINE INJECTION, USP (866-10) [Suspect]
     Active Substance: CYCLOSPORINE
     Dosage: DOSE NOT PROVIDED
     Route: 065
  4. ETANERCEPT [Suspect]
     Active Substance: ETANERCEPT
     Dosage: DOSE NOT PROVIDED
     Route: 065
  5. ADALIMUMAB [Suspect]
     Active Substance: ADALIMUMAB
     Dosage: DOSE NOT PROVIDED
     Route: 065

REACTIONS (6)
  - Abscess [Fatal]
  - Skin cancer [Fatal]
  - Osteomyelitis [Fatal]
  - Sepsis [Fatal]
  - Clostridium difficile colitis [Fatal]
  - Cellulitis [Fatal]
